FAERS Safety Report 6898399-X (Version None)
Quarter: 2010Q3

REPORT INFORMATION
  Report Type: 
  Country: None (occurrence: None)
  Receive Date: 20100802
  Receipt Date: 20071005
  Transmission Date: 20110219
  Serious: Yes (Other)
  Sender: FDA-Public Use
  Company Number: US-PFIZER INC-2007083812

PATIENT
  Sex: Female
  Weight: 92.727 kg

DRUGS (3)
  1. LYRICA [Suspect]
     Indication: NERVE INJURY
     Dosage: EVERY DAY
     Route: 048
  2. CYMBALTA [Concomitant]
     Route: 048
  3. METHADONE HCL [Concomitant]
     Route: 048

REACTIONS (5)
  - HOT FLUSH [None]
  - INCREASED APPETITE [None]
  - INSOMNIA [None]
  - LIBIDO DECREASED [None]
  - WEIGHT INCREASED [None]
